FAERS Safety Report 9003207 (Version 1)
Quarter: 2013Q1

REPORT INFORMATION
  Report Type: Spontaneous
  Country: US (occurrence: US)
  Receive Date: 20130108
  Receipt Date: 20130108
  Transmission Date: 20140127
  Serious: Yes (Death)
  Sender: FDA-Public Use
  Company Number: US-BAYER-2013-001675

PATIENT
  Age: 18 Year
  Sex: Male

DRUGS (3)
  1. DIPHENHYDRAMINE HYDROCHLORIDE [Suspect]
     Route: 048
  2. BUPROPION [Suspect]
     Route: 048
  3. ZOLPIDEM [Suspect]
     Route: 048

REACTIONS (2)
  - Drug abuse [Fatal]
  - Intentional overdose [Fatal]
